FAERS Safety Report 10208490 (Version 1)
Quarter: 2014Q2

REPORT INFORMATION
  Report Type: Spontaneous
  Country: US (occurrence: US)
  Receive Date: 20140530
  Receipt Date: 20140530
  Transmission Date: 20141212
  Serious: Yes (Hospitalization)
  Sender: FDA-Public Use
  Company Number: US-GLAXOSMITHKLINE-A1075144A

PATIENT
  Age: 65 Year
  Sex: Female

DRUGS (1)
  1. PROMACTA [Suspect]
     Indication: PLATELET COUNT DECREASED
     Dosage: 50MG UNKNOWN
     Route: 065
     Dates: start: 20110624

REACTIONS (1)
  - Foot fracture [Unknown]
